FAERS Safety Report 5270250-3 (Version None)
Quarter: 2007Q1

REPORT INFORMATION
  Report Type: 
  Country: None (occurrence: None)
  Receive Date: 20070320
  Receipt Date: 20011001
  Transmission Date: 20070707
  Serious: Yes (Death, Hospitalization, Other)
  Sender: FDA-Public Use
  Company Number: ES-BRISTOL-MYERS SQUIBB COMPANY-11420080

PATIENT
  Age: 37 Year
  Sex: Female

DRUGS (3)
  1. SUSTIVA [Suspect]
     Indication: HIV INFECTION
     Dosage: 600 MG AES#DOSE_FREQUENCY: QD
     Route: 048
     Dates: start: 19990224, end: 19990723
  2. STAVUDINE [Concomitant]
     Dates: end: 19990724
  3. DIDANOSINE [Concomitant]
     Dates: end: 19990724

REACTIONS (4)
  - ABDOMINAL PAIN [None]
  - ASCITES [None]
  - DISORIENTATION [None]
  - HEPATIC FAILURE [None]
